FAERS Safety Report 7731668-X (Version None)
Quarter: 2011Q3

REPORT INFORMATION
  Report Type: 
  Country: None (occurrence: None)
  Receive Date: 20110906
  Receipt Date: 20110831
  Transmission Date: 20111222
  Serious: Yes (Hospitalization, Other)
  Sender: FDA-Public Use
  Company Number: ES-PFIZER INC-2011202470

PATIENT
  Age: 59 Year
  Sex: Female

DRUGS (2)
  1. TOVIAZ [Suspect]
     Indication: URINARY INCONTINENCE
     Dosage: 4 MG, 1X/DAY
     Route: 048
     Dates: start: 20090101
  2. ERBITUX [Suspect]
     Indication: COLON CANCER
     Dosage: 5 MG, CYCLIC
     Route: 042
     Dates: start: 20110401, end: 20110524

REACTIONS (6)
  - DIARRHOEA [None]
  - NEUTROPENIA [None]
  - VOMITING [None]
  - ABDOMINAL PAIN [None]
  - NAUSEA [None]
  - TOXICITY TO VARIOUS AGENTS [None]
